FAERS Safety Report 4767089-1 (Version None)
Quarter: 2005Q3

REPORT INFORMATION
  Report Type: 
  Country: None (occurrence: None)
  Receive Date: 20050906
  Receipt Date: 20050701
  Transmission Date: 20060218
  Serious: No
  Sender: FDA-Public Use
  Company Number: 2005-BP-11239BP

PATIENT

DRUGS (3)
  1. SPIRIVA [Suspect]
     Dosage: 18 MCG (18 MCG), IH
     Route: 055
  2. FORADIL [Concomitant]
  3. PULICORT (BUDESONIDE) [Concomitant]

REACTIONS (1)
  - CANDIDIASIS [None]
